FAERS Safety Report 21251607 (Version 1)
Quarter: 2022Q3

REPORT INFORMATION
  Report Type: Spontaneous
  Country: US (occurrence: US)
  Receive Date: 20220825
  Receipt Date: 20220825
  Transmission Date: 20221027
  Serious: Yes (Other)
  Sender: FDA-Public Use
  Company Number: US-LUPIN PHARMACEUTICALS INC.-2022-10529

PATIENT
  Age: 7 Decade

DRUGS (6)
  1. CLOBETASOL [Suspect]
     Active Substance: CLOBETASOL
     Indication: Palmar-plantar erythrodysaesthesia syndrome
     Dosage: UNK, 0.05 PERCENT OINTMENT
     Route: 065
  2. UREA [Suspect]
     Active Substance: UREA
     Indication: Palmar-plantar erythrodysaesthesia syndrome
     Dosage: UNK
     Route: 065
  3. ACETIC ACID [Suspect]
     Active Substance: ACETIC ACID
     Indication: Palmar-plantar erythrodysaesthesia syndrome
     Dosage: UNK, DILUTED VINEGAR SOAKS
     Route: 065
  4. REGORAFENIB [Concomitant]
     Active Substance: REGORAFENIB
     Indication: Gastrointestinal stromal tumour
     Dosage: 120 MG, QD, 120 MG DAILY FOR 3 WEEK ON, ALTERNATING WITH 1 WEEK OFF
     Route: 065
  5. ACITRETIN [Concomitant]
     Active Substance: ACITRETIN
     Indication: Palmar-plantar erythrodysaesthesia syndrome
     Dosage: 10 MG, QD, INITIAL DOSE; DAILY
     Route: 065
  6. ACITRETIN [Concomitant]
     Active Substance: ACITRETIN
     Dosage: 25 MG, QD, MAXIMUM DOSE; DAILY
     Route: 065

REACTIONS (2)
  - Drug ineffective for unapproved indication [Unknown]
  - Off label use [Unknown]
